FAERS Safety Report 15113996 (Version 2)
Quarter: 2018Q3

REPORT INFORMATION
  Report Type: Spontaneous
  Country: DE (occurrence: DE)
  Receive Date: 20180706
  Receipt Date: 20180817
  Transmission Date: 20181010
  Serious: Yes (Hospitalization, Other)
  Sender: FDA-Public Use
  Company Number: DE-009507513-1807DEU000090

PATIENT
  Age: 53 Year
  Sex: Male
  Weight: 88 kg

DRUGS (7)
  1. ZOPICLONE [Concomitant]
     Active Substance: ZOPICLONE
     Dosage: 7.5 MG, UNK
  2. RANEXA [Concomitant]
     Active Substance: RANOLAZINE
     Dosage: 500 MG, UNK
  3. TIOBLIS 10 MG/20 MG [Suspect]
     Active Substance: ATORVASTATIN\EZETIMIBE
     Indication: HYPERLIPIDAEMIA
     Dosage: UNK
     Route: 048
     Dates: start: 20171222, end: 20180525
  4. PROCORALAN [Concomitant]
     Active Substance: IVABRADINE
     Indication: CORONARY ARTERY DISEASE
     Dosage: 5 MG, BID
     Dates: start: 20171013
  5. TIOBLIS 10 MG/10 MG [Suspect]
     Active Substance: ATORVASTATIN\EZETIMIBE
     Indication: HYPERCHOLESTEROLAEMIA
     Route: 048
  6. CLOPIDOGREL [Concomitant]
     Active Substance: CLOPIDOGREL BISULFATE
     Indication: CORONARY ARTERY DISEASE
     Dosage: 75 MG, QD
     Dates: start: 2013
  7. ALLOPURINOL. [Concomitant]
     Active Substance: ALLOPURINOL
     Indication: BLOOD URIC ACID DECREASED
     Dosage: 100 MG, PERMANENT MEDICATION

REACTIONS (2)
  - Superinfection [Recovered/Resolved]
  - Gynaecomastia [Recovered/Resolved]
